FAERS Safety Report 9098132 (Version 3)
Quarter: 2013Q1

REPORT INFORMATION
  Report Type: Spontaneous
  Country: AU (occurrence: AU)
  Receive Date: 20130214
  Receipt Date: 20130311
  Transmission Date: 20140127
  Serious: Yes (Death)
  Sender: FDA-Public Use
  Company Number: AU-B.I. PHARMACEUTICALS,INC./RIDGEFIELD-2013-AU-00116AU

PATIENT
  Age: 83 Year
  Sex: Male
  Weight: 71 kg

DRUGS (8)
  1. PRADAXA [Suspect]
     Indication: ATRIAL FIBRILLATION
     Dosage: 220 MG
     Dates: start: 20110609
  2. TITRACE [Concomitant]
     Dates: start: 20071207
  3. LIPITOR [Concomitant]
     Dosage: 20 MG
  4. DILATREND [Concomitant]
     Dosage: 50 MG
     Dates: start: 20080529
  5. LASIX [Concomitant]
     Dosage: 80 MG
     Dates: start: 20101116
  6. ACTONEL EC COMBI [Concomitant]
     Dates: start: 20111216
  7. MAGNESIUM [Concomitant]
     Dosage: 10 MG
     Dates: start: 20110609
  8. NORMISON [Concomitant]

REACTIONS (2)
  - Sudden cardiac death [Fatal]
  - Renal impairment [Unknown]
